FAERS Safety Report 9295755 (Version 1)
Quarter: 2013Q2

REPORT INFORMATION
  Report Type: Spontaneous
  Country: FR (occurrence: FR)
  Receive Date: 20130517
  Receipt Date: 20130517
  Transmission Date: 20140414
  Serious: Yes (Hospitalization, Other)
  Sender: FDA-Public Use
  Company Number: FR-PFIZER INC-2013147357

PATIENT
  Age: 32 Year
  Sex: Female

DRUGS (2)
  1. MINIDRIL [Suspect]
     Indication: ORAL CONTRACEPTION
     Dosage: UNK
     Route: 048
     Dates: start: 2005, end: 20121104
  2. NEBIVOLOL [Concomitant]
     Indication: TACHYCARDIA
     Dosage: UNK
     Route: 048
     Dates: start: 20121031, end: 20121104

REACTIONS (2)
  - Ischaemic stroke [Recovered/Resolved with Sequelae]
  - Carotid artery dissection [Recovered/Resolved with Sequelae]
